FAERS Safety Report 7724382-8 (Version None)
Quarter: 2011Q3

REPORT INFORMATION
  Report Type: 
  Country: None (occurrence: None)
  Receive Date: 20110901
  Receipt Date: 20110830
  Transmission Date: 20111222
  Serious: Yes (Other)
  Sender: FDA-Public Use
  Company Number: NL-ABBOTT-11P-114-0843800-00

PATIENT
  Sex: Female
  Weight: 71 kg

DRUGS (5)
  1. LEUPROLIDE ACETATE [Suspect]
     Indication: ENDOMETRIOSIS
     Route: 058
     Dates: start: 20091222
  2. MOVICOLON [Concomitant]
     Indication: LAXATIVE SUPPORTIVE CARE
     Route: 048
     Dates: start: 20060101
  3. PARACETAMOL/CODEINE 500/10 MG TABLET [Concomitant]
     Indication: PAIN
     Route: 048
  4. LEUPROLIDE ACETATE [Suspect]
     Indication: ENDOMETRIOSIS
     Dates: start: 20070822, end: 20091204
  5. SUMATRIPTAN SUCCINATE [Concomitant]
     Indication: MIGRAINE
     Route: 048

REACTIONS (3)
  - HOT FLUSH [None]
  - CYST REMOVAL [None]
  - CYST [None]
